FAERS Safety Report 7523469-2 (Version None)
Quarter: 2011Q2

REPORT INFORMATION
  Report Type: 
  Country: None (occurrence: None)
  Receive Date: 20110601
  Receipt Date: 20110601
  Transmission Date: 20111010
  Serious: Yes (Hospitalization)
  Sender: FDA-Public Use
  Company Number: None

PATIENT
  Sex: Male
  Weight: 82.3 kg

DRUGS (2)
  1. FLUDARABINE PHOSPHATE [Suspect]
     Dosage: 80 MG
     Dates: end: 20110515
  2. RITUXIMAB (MOAB C2B8 ANTI CD20, CHIMERIC) [Suspect]
     Dosage: 746 MG
     Dates: end: 20110511

REACTIONS (2)
  - ANAL FISTULA [None]
  - FEBRILE NEUTROPENIA [None]
